FAERS Safety Report 7903620-2 (Version None)
Quarter: 2011Q4

REPORT INFORMATION
  Report Type: 
  Country: None (occurrence: None)
  Receive Date: 20111107
  Receipt Date: 20111018
  Transmission Date: 20120403
  Serious: Yes (Hospitalization)
  Sender: FDA-Public Use
  Company Number: 1084991

PATIENT
  Age: 78 Year
  Sex: Male

DRUGS (8)
  1. OXALIPLATIN [Suspect]
     Indication: CHEMOTHERAPY
     Dosage: INTRAVENOUS DRIP, 120 MG, Q2W
     Dates: start: 20110829
  2. OXALIPLATIN [Suspect]
     Indication: CHEMOTHERAPY
     Dosage: INTRAVENOUS DRIP, 120 MG, Q2W
     Dates: end: 20110927
  3. GRANISETRON [Concomitant]
  4. FLUOROURACIL [Concomitant]
  5. (LEUCOVORIN 100566701/) [Concomitant]
  6. CELECOXIB [Concomitant]
  7. OXALIPLATIN [Suspect]
     Indication: CHEMOTHERAPY
     Dosage: INTRAVENOUS DRIP
     Route: 041
     Dates: start: 20110829
  8. ATORVASTATIN [Concomitant]

REACTIONS (6)
  - PYREXIA [None]
  - TACHYCARDIA [None]
  - HYPERSENSITIVITY [None]
  - RASH PRURITIC [None]
  - TREMOR [None]
  - HYPOTENSION [None]
